FAERS Safety Report 7154437-0 (Version None)
Quarter: 2010Q4

REPORT INFORMATION
  Report Type: 
  Country: None (occurrence: None)
  Receive Date: 20101213
  Receipt Date: 20101209
  Transmission Date: 20110411
  Serious: Yes (Life-Threatening, Hospitalization, Other)
  Sender: FDA-Public Use
  Company Number: US-RB-018927-10

PATIENT
  Age: 30 Year
  Sex: Female

DRUGS (4)
  1. SUBOXONE [Suspect]
     Route: 060
     Dates: start: 20080701
  2. SUBOXONE [Suspect]
     Dosage: TAPERING DOSES
     Route: 060
  3. SUBOXONE [Suspect]
     Indication: DRUG DEPENDENCE
     Route: 060
     Dates: end: 20100707
  4. METHADONE [Suspect]
     Indication: DRUG DEPENDENCE
     Dosage: DOSES VARIED UP TO 140 MG DAILY
     Route: 048
     Dates: start: 20020101, end: 20080701

REACTIONS (11)
  - BLOOD PRESSURE INCREASED [None]
  - CARDIAC ARREST [None]
  - CARDIAC FAILURE CONGESTIVE [None]
  - CARDIAC VALVE DISEASE [None]
  - CHEST PAIN [None]
  - COMA [None]
  - FATIGUE [None]
  - HEART RATE IRREGULAR [None]
  - MIGRAINE [None]
  - RIB FRACTURE [None]
  - VOMITING [None]
